FAERS Safety Report 23872481 (Version 1)
Quarter: 2024Q2

REPORT INFORMATION
  Report Type: Spontaneous
  Country: FR (occurrence: FR)
  Receive Date: 20240520
  Receipt Date: 20240520
  Transmission Date: 20240716
  Serious: Yes (Life-Threatening, Hospitalization)
  Sender: FDA-Public Use
  Company Number: None

PATIENT
  Age: 60 Year
  Sex: Male
  Weight: 46 kg

DRUGS (7)
  1. PEMETREXED [Suspect]
     Active Substance: PEMETREXED
     Indication: Lung carcinoma cell type unspecified stage IV
     Dosage: C2
     Route: 042
     Dates: start: 20231221, end: 20231221
  2. PEMETREXED [Suspect]
     Active Substance: PEMETREXED
     Indication: Lung carcinoma cell type unspecified stage IV
     Dosage: C1
     Route: 042
     Dates: start: 20231122, end: 20231122
  3. KEYTRUDA [Suspect]
     Active Substance: PEMBROLIZUMAB
     Indication: Lung carcinoma cell type unspecified stage IV
     Dosage: C1
     Route: 042
     Dates: start: 20231122, end: 20231122
  4. KEYTRUDA [Suspect]
     Active Substance: PEMBROLIZUMAB
     Indication: Lung carcinoma cell type unspecified stage IV
     Dosage: C2
     Route: 042
     Dates: start: 20231221, end: 20231221
  5. ZOMETA [Suspect]
     Active Substance: ZOLEDRONIC ACID
     Indication: Lung carcinoma cell type unspecified stage IV
     Dosage: TIME INTERVAL: TOTAL
     Route: 042
     Dates: start: 20231222, end: 20231222
  6. CARBOPLATIN [Suspect]
     Active Substance: CARBOPLATIN
     Indication: Lung carcinoma cell type unspecified stage IV
     Dosage: C2
     Route: 042
     Dates: start: 20231221, end: 20231221
  7. CARBOPLATIN [Suspect]
     Active Substance: CARBOPLATIN
     Indication: Lung carcinoma cell type unspecified stage IV
     Dosage: C1
     Route: 042
     Dates: start: 20231122, end: 20231122

REACTIONS (1)
  - Lichenoid keratosis [Recovered/Resolved]

NARRATIVE: CASE EVENT DATE: 20231231
